FAERS Safety Report 25342521 (Version 1)
Quarter: 2025Q2

REPORT INFORMATION
  Report Type: Spontaneous
  Country: US (occurrence: US)
  Receive Date: 20250521
  Receipt Date: 20250521
  Transmission Date: 20250716
  Serious: No
  Sender: CATALYST PHARMA
  Company Number: US-CATALYST PHARMACEUTICALS-US-CATA-25-00443

PATIENT
  Age: 12 Year
  Sex: Male
  Weight: 37.692 kg

DRUGS (6)
  1. AGAMREE [Suspect]
     Active Substance: VAMOROLONE
     Indication: Duchenne muscular dystrophy
     Dosage: 5.2 ML ONCE A DAY
     Route: 048
     Dates: start: 20241012
  2. AGAMREE [Suspect]
     Active Substance: VAMOROLONE
     Dosage: 5.4 ML BY MOUTH ONCE A DAY
     Route: 048
     Dates: start: 20250108
  3. DUVYZAT [Suspect]
     Active Substance: GIVINOSTAT
     Indication: Duchenne muscular dystrophy
     Dosage: 2.5 ML TWICE DAILY
     Route: 065
  4. DUVYZAT [Suspect]
     Active Substance: GIVINOSTAT
     Route: 065
  5. LISINOPRIL [Concomitant]
     Active Substance: LISINOPRIL
     Indication: Cardiovascular disorder
     Dosage: 10 MG ONCE A DAY
     Route: 065
  6. VITAMIN D3 [Concomitant]
     Active Substance: CHOLECALCIFEROL
     Indication: Bone disorder
     Dosage: 1000 UNITS ONCE A DAY
     Route: 065

REACTIONS (1)
  - Platelet count decreased [Not Recovered/Not Resolved]

NARRATIVE: CASE EVENT DATE: 20250301
